FAERS Safety Report 6214013-0 (Version None)
Quarter: 2009Q2

REPORT INFORMATION
  Report Type: 
  Country: None (occurrence: None)
  Receive Date: 20090602
  Receipt Date: 20090601
  Transmission Date: 20091009
  Serious: Yes (Hospitalization, Disabling)
  Sender: FDA-Public Use
  Company Number: SP02270

PATIENT
  Age: 64 Year
  Sex: Female

DRUGS (4)
  1. VISICOL [Suspect]
     Indication: COLONOSCOPY
     Dosage: 50 GM, ORAL
     Route: 048
     Dates: start: 20090130, end: 20090130
  2. ROSUVASTATIN CALCIUM [Concomitant]
  3. CILOSTAZOL [Concomitant]
  4. OLMESARTAN MEDOXOMIL [Concomitant]

REACTIONS (5)
  - DEHYDRATION [None]
  - HYPOAESTHESIA [None]
  - HYPOCALCAEMIA [None]
  - NEPHROPATHY [None]
  - RENAL IMPAIRMENT [None]
